FAERS Safety Report 5745105-8 (Version None)
Quarter: 2008Q2

REPORT INFORMATION
  Report Type: 
  Country: None (occurrence: None)
  Receive Date: 20080521
  Receipt Date: 20080514
  Transmission Date: 20081010
  Serious: Yes (Hospitalization, Other)
  Sender: FDA-Public Use
  Company Number: PHBS2007BR11662

PATIENT
  Age: 54 Year
  Sex: Female
  Weight: 71.6 kg

DRUGS (14)
  1. FORASEQ [Suspect]
     Indication: ASTHMA
     Dosage: EVERY 12 HRS (WARM CLIMATE, 3-4 TIMES (COLD)
  2. OS-CAL D [Concomitant]
     Indication: OSTEOPOROSIS
     Dosage: 500 MG, QD
     Route: 048
     Dates: start: 20030101
  3. ACTONEL [Concomitant]
     Indication: OSTEOPOROSIS
  4. BEROTEC [Concomitant]
  5. ATROVENT [Concomitant]
  6. BAMBEC [Concomitant]
     Dosage: 10 ML/NIGHT
  7. DIGESAN [Concomitant]
  8. COMBIVENT [Concomitant]
     Indication: FATIGUE
  9. PREDNISONE TAB [Concomitant]
     Dosage: 20 MG, TID
  10. OXYGEN THERAPY [Concomitant]
     Dosage: 2G/L
  11. LORATADINE [Concomitant]
     Indication: ASTHMA
     Dosage: 10 MG, Q12H
     Route: 048
     Dates: start: 20050101
  12. MODURETIC 5-50 [Concomitant]
     Indication: HYPERTENSION
     Dosage: 25 MG, QD
     Route: 048
     Dates: start: 20050101
  13. SIMVASTATIN [Concomitant]
     Indication: BLOOD CHOLESTEROL INCREASED
     Dosage: 10 MG, QD
     Route: 048
     Dates: start: 20050101
  14. OMEPRAZOLE [Concomitant]
     Indication: STOMACH DISCOMFORT
     Dosage: 40 MG, QD
     Route: 048
     Dates: start: 20050101, end: 20050101

REACTIONS (8)
  - ASTHENIA [None]
  - ASTHMA [None]
  - BLOOD POTASSIUM DECREASED [None]
  - BLOOD PRESSURE INCREASED [None]
  - BRONCHOPNEUMONIA [None]
  - DYSPNOEA EXERTIONAL [None]
  - FATIGUE [None]
  - MALAISE [None]
